FAERS Safety Report 7783185-9 (Version None)
Quarter: 2011Q3

REPORT INFORMATION
  Report Type: 
  Country: None (occurrence: None)
  Receive Date: 20110928
  Receipt Date: 20110916
  Transmission Date: 20111222
  Serious: Yes (Hospitalization)
  Sender: FDA-Public Use
  Company Number: CZ-SANOFI-AVENTIS-2011SA060291

PATIENT
  Age: 81 Year
  Sex: Male
  Weight: 102 kg

DRUGS (8)
  1. DIGOXIN [Concomitant]
  2. WARFARIN [Concomitant]
  3. ATORVASTATIN [Concomitant]
  4. PROPAFENONE HCL [Concomitant]
  5. FUROSEMIDE [Concomitant]
  6. METOPROLOL TARTRATE [Concomitant]
  7. THYROXIN [Concomitant]
  8. DRONEDARONE HCL [Suspect]
     Indication: ATRIAL FIBRILLATION
     Route: 048
     Dates: start: 20101215, end: 20110711

REACTIONS (2)
  - CARDIAC FAILURE [None]
  - PULMONARY OEDEMA [None]
